FAERS Safety Report 11878353 (Version 1)
Quarter: 2015Q4

REPORT INFORMATION
  Report Type: Spontaneous
  Country: TH (occurrence: TH)
  Receive Date: 20151230
  Receipt Date: 20151230
  Transmission Date: 20160305
  Serious: Yes (Hospitalization, Other)
  Sender: FDA-Public Use
  Company Number: TH-WATSON-2015-28596

PATIENT
  Age: 30 Year
  Sex: Male
  Weight: 65 kg

DRUGS (10)
  1. AZITHROMYCIN [Concomitant]
     Active Substance: AZITHROMYCIN ANHYDROUS
     Indication: MALARIA
     Dosage: UNKNOWN
     Route: 065
  2. ARTESUNATE [Concomitant]
     Active Substance: ARTESUNATE
     Indication: MALARIA
     Dosage: 2.4 MG/KG BODY WEIGHT AT 0, 12, 24 AND 48HRS (4 DOSES)
     Route: 042
  3. ARTESUNATE [Concomitant]
     Active Substance: ARTESUNATE
     Dosage: SEVEN DOSES
     Route: 042
  4. CEFTRIAXONE (UNKNOWN) [Suspect]
     Active Substance: CEFTRIAXONE
     Indication: EVIDENCE BASED TREATMENT
     Dosage: 2000 MG, BID
     Route: 065
  5. ARTEMETHER + LUMEFANTRINE [Concomitant]
     Indication: MALARIA
     Dosage: 240/1440 MG IN 3 DOSES
     Route: 048
  6. MEROPENEM. [Concomitant]
     Active Substance: MEROPENEM
     Indication: EVIDENCE BASED TREATMENT
     Route: 065
  7. DEXAMETHASONE (UNKNOWN) [Suspect]
     Active Substance: DEXAMETHASONE
     Indication: AUTOIMMUNE HAEMOLYTIC ANAEMIA
     Route: 065
  8. CHLOROQUINE. [Concomitant]
     Active Substance: CHLOROQUINE
     Indication: PLASMODIUM VIVAX INFECTION
     Dosage: UNKNOWN
     Route: 065
  9. AMIKACIN [Suspect]
     Active Substance: AMIKACIN
     Indication: EVIDENCE BASED TREATMENT
     Route: 065
  10. QUININE [Concomitant]
     Active Substance: QUININE
     Indication: MALARIA
     Dosage: FIVE DOSES
     Route: 042

REACTIONS (3)
  - Renal injury [Unknown]
  - Haemolytic anaemia [Recovered/Resolved]
  - Mucormycosis [Recovering/Resolving]
